FAERS Safety Report 8377634-5 (Version None)
Quarter: 2012Q2

REPORT INFORMATION
  Report Type: 
  Country: None (occurrence: None)
  Receive Date: 20120522
  Receipt Date: 20120516
  Transmission Date: 20120825
  Serious: Yes (Hospitalization)
  Sender: FDA-Public Use
  Company Number: US-BAYER-2012-014757

PATIENT
  Age: 27 Year
  Sex: Female
  Weight: 84.807 kg

DRUGS (8)
  1. DROSPIRENONE AND ETHINYL ESTRADIOL [Suspect]
     Dosage: UNK
     Dates: start: 20100301, end: 20100419
  2. IBUPROFEN [Concomitant]
  3. MORPHINE [Concomitant]
  4. YASMIN [Suspect]
     Indication: CONTRACEPTION
     Dosage: UNK
     Dates: start: 20060101, end: 20100401
  5. DROSPIRENONE AND ETHINYL ESTRADIOL [Suspect]
     Indication: CONTRACEPTION
     Dosage: UNK
     Dates: start: 20060101, end: 20100401
  6. TOPROL-XL [Concomitant]
  7. YAZ [Suspect]
     Indication: CONTRACEPTION
     Dosage: UNK
     Dates: start: 20060101, end: 20100401
  8. NORCO [Concomitant]

REACTIONS (6)
  - EMOTIONAL DISTRESS [None]
  - ABDOMINAL PAIN [None]
  - DYSPNOEA [None]
  - PULMONARY EMBOLISM [None]
  - DEEP VEIN THROMBOSIS [None]
  - INJURY [None]
